FAERS Safety Report 20120326 (Version 1)
Quarter: 2021Q4

REPORT INFORMATION
  Report Type: Spontaneous
  Country: CN (occurrence: CN)
  Receive Date: 20211126
  Receipt Date: 20211126
  Transmission Date: 20220303
  Serious: Yes (Hospitalization)
  Sender: FDA-Public Use
  Company Number: CN-ABBVIE-21K-035-4169655-00

PATIENT
  Age: 27 Year
  Sex: Male

DRUGS (5)
  1. VALPROATE SODIUM [Interacting]
     Active Substance: VALPROATE SODIUM
     Indication: Seizure prophylaxis
     Route: 048
     Dates: start: 20190908
  2. VALPROATE SODIUM [Interacting]
     Active Substance: VALPROATE SODIUM
     Dosage: DOSE INCREASED
     Route: 048
     Dates: start: 202001
  3. PHENOBARBITAL [Interacting]
     Active Substance: PHENOBARBITAL
     Indication: Seizure prophylaxis
     Route: 048
     Dates: start: 20190908, end: 20191128
  4. CARBAMAZEPINE [Interacting]
     Active Substance: CARBAMAZEPINE
     Indication: Seizure prophylaxis
     Route: 048
     Dates: start: 20190908
  5. LAMOTRIGINE [Concomitant]
     Active Substance: LAMOTRIGINE
     Indication: Seizure prophylaxis

REACTIONS (2)
  - Anticonvulsant drug level below therapeutic [Recovering/Resolving]
  - Drug interaction [Recovering/Resolving]

NARRATIVE: CASE EVENT DATE: 20191106
